FAERS Safety Report 8731769 (Version 2)
Quarter: 2013Q1

REPORT INFORMATION
  Report Type: Spontaneous
  Country: DE (occurrence: None)
  Receive Date: 20120724
  Receipt Date: 20130227
  Transmission Date: 20140127
  Serious: Yes (Death)
  Sender: FDA-Public Use
  Company Number: 2012032912

PATIENT
  Age: 85 Year
  Sex: Male

DRUGS (4)
  1. PRIVIGEN [Suspect]
     Indication: B-CELL SMALL LYMPHOCYTIC LYMPHOMA
     Dosage: 10 G QD, INFUSION RATE: 60ML/H
     Route: 042
     Dates: start: 20120117, end: 20120117
  2. OMEPRAZOLE [Concomitant]
  3. TILOCOMP (VALORON N /00628301/) [Concomitant]
  4. NOVAMINSULFON (METAMIZOLE SODIUM) [Concomitant]

REACTIONS (2)
  - Pancreatic carcinoma [None]
  - Malignant neoplasm progression [None]
